FAERS Safety Report 5165835-9 (Version None)
Quarter: 2006Q4

REPORT INFORMATION
  Report Type: 
  Country: None (occurrence: None)
  Receive Date: 20061128
  Receipt Date: 20061113
  Transmission Date: 20070319
  Serious: Yes (Other)
  Sender: FDA-Public Use
  Company Number: 2006JP002531

PATIENT
  Age: 50 Year
  Sex: Male
  Weight: 61 kg

DRUGS (10)
  1. TACROLIMUS [Suspect]
     Indication: RHEUMATOID ARTHRITIS
     Dosage: SEE IMAGE, ORAL
     Route: 048
     Dates: start: 20050628, end: 20051003
  2. TACROLIMUS [Suspect]
     Indication: RHEUMATOID ARTHRITIS
     Dosage: SEE IMAGE, ORAL
     Route: 048
     Dates: start: 20051004, end: 20051017
  3. TACROLIMUS [Suspect]
     Indication: RHEUMATOID ARTHRITIS
     Dosage: SEE IMAGE, ORAL
     Route: 048
     Dates: start: 20051018, end: 20051114
  4. TACROLIMUS [Suspect]
     Indication: RHEUMATOID ARTHRITIS
     Dosage: SEE IMAGE, ORAL
     Route: 048
     Dates: start: 20051115, end: 20051212
  5. TACROLIMUS [Suspect]
     Indication: RHEUMATOID ARTHRITIS
     Dosage: SEE IMAGE, ORAL
     Route: 048
     Dates: start: 20051213
  6. PREDNISOLONE [Concomitant]
  7. MOBIC [Concomitant]
  8. PROTECADIN (LAFUTIDINE) [Concomitant]
  9. MUCOSTA (REBAMIPIDE) [Concomitant]
  10. PLATBIT (ALFACALCIDOL) [Concomitant]

REACTIONS (1)
  - THROMBOPHLEBITIS SUPERFICIAL [None]
